FAERS Safety Report 7359536-6 (Version None)
Quarter: 2011Q1

REPORT INFORMATION
  Report Type: 
  Country: None (occurrence: None)
  Receive Date: 20110310
  Receipt Date: 20110223
  Transmission Date: 20110831
  Serious: Yes (Other)
  Sender: FDA-Public Use
  Company Number: 2011MA001929

PATIENT

DRUGS (1)
  1. PROMETHAZINE HCL [Suspect]
     Indication: INSOMNIA

REACTIONS (10)
  - HEADACHE [None]
  - APATHY [None]
  - DISORIENTATION [None]
  - LETHARGY [None]
  - DISTURBANCE IN ATTENTION [None]
  - AGITATION [None]
  - ABNORMAL DREAMS [None]
  - CLUMSINESS [None]
  - INSOMNIA [None]
  - RESTLESS LEGS SYNDROME [None]
